FAERS Safety Report 16598550 (Version 1)
Quarter: 2019Q3

REPORT INFORMATION
  Report Type: Spontaneous
  Country: DE (occurrence: DE)
  Receive Date: 20190719
  Receipt Date: 20190719
  Transmission Date: 20191004
  Serious: Yes (Hospitalization)
  Sender: FDA-Public Use
  Company Number: DE-PFIZER INC-2019304194

PATIENT
  Age: 68 Year
  Sex: Female

DRUGS (9)
  1. INSULIN [Concomitant]
     Active Substance: INSULIN NOS
     Dosage: UNK IU, UNK, ACCORDING TO BLOOD SUGAR VALUE, REPORTED AS ^NORMALINSULIN^
  2. LEVOTHYROXINE. [Concomitant]
     Active Substance: LEVOTHYROXINE
     Dosage: 50 ?G, 0.5-0-0-0
  3. ENOXAPARIN [Concomitant]
     Active Substance: ENOXAPARIN
     Dosage: 0.7 ML, 2X/DAY, 1-0-1-0
  4. GEMCITABINE HYDROCHLORIDE. [Suspect]
     Active Substance: GEMCITABINE HYDROCHLORIDE
     Dosage: UNK
     Dates: end: 20190116
  5. ATENOLOL. [Concomitant]
     Active Substance: ATENOLOL
     Dosage: 50 MG, 2X/DAY, 1-0-1-0
  6. COLECALCIFEROL [Concomitant]
     Active Substance: CHOLECALCIFEROL
     Dosage: 1000 IU, 1X/DAY, 1-0-0-0
  7. TORASEMID [Concomitant]
     Active Substance: TORSEMIDE
     Dosage: 20 MG, 1X/DAY, 1-0-0-0
  8. METOCLOPRAMIDE. [Concomitant]
     Active Substance: METOCLOPRAMIDE
     Dosage: 10 MG, AS NEEDED, MAX. 4 X DAY
  9. ONDANSETRON [Concomitant]
     Active Substance: ONDANSETRON
     Dosage: 8 MG, AS NEEDED, MAX. 2X DAY
     Route: 060

REACTIONS (5)
  - Glomerular filtration rate decreased [Unknown]
  - Decreased appetite [Unknown]
  - Blood count abnormal [Unknown]
  - Liver function test abnormal [Unknown]
  - Nausea [Unknown]
